FAERS Safety Report 11058867 (Version 1)
Quarter: 2015Q2

REPORT INFORMATION
  Report Type: Spontaneous
  Country: US (occurrence: None)
  Receive Date: 20150422
  Receipt Date: 20150422
  Transmission Date: 20150821
  Serious: Yes (Disabling)
  Sender: FDA-Public Use
  Company Number: None

PATIENT
  Age: 52 Year
  Sex: Female
  Weight: 70.76 kg

DRUGS (4)
  1. METOTOPROLOL [Concomitant]
  2. ELESTRIN [Concomitant]
     Active Substance: ESTRADIOL
  3. CONTRAVE [Suspect]
     Active Substance: BUPROPION HYDROCHLORIDE\NALTREXONE HYDROCHLORIDE
     Indication: WEIGHT DECREASED
     Dosage: 2 PILLS TWICE DAILY TAKEN BY MOUTH
     Route: 048
     Dates: start: 20150225, end: 20150411
  4. CYMBALTA [Concomitant]
     Active Substance: DULOXETINE HYDROCHLORIDE

REACTIONS (13)
  - Panic attack [None]
  - Dry mouth [None]
  - Abdominal pain upper [None]
  - Dizziness [None]
  - Disorientation [None]
  - Nausea [None]
  - Diarrhoea [None]
  - Hallucination [None]
  - Dyspnoea [None]
  - Insomnia [None]
  - Constipation [None]
  - Nightmare [None]
  - Stomatitis [None]

NARRATIVE: CASE EVENT DATE: 20150225
